FAERS Safety Report 17404187 (Version 3)
Quarter: 2023Q4

REPORT INFORMATION
  Report Type: Report from Study
  Country: AU (occurrence: AU)
  Receive Date: 20200211
  Receipt Date: 20231005
  Transmission Date: 20240110
  Serious: Yes (Other)
  Sender: FDA-Public Use
  Company Number: AU-NOVARTISPH-NVSC2020AU036692

PATIENT
  Sex: Female

DRUGS (1)
  1. COSENTYX [Suspect]
     Active Substance: SECUKINUMAB
     Indication: Ankylosing spondylitis
     Dosage: UNK UNK, QMO
     Route: 058
     Dates: start: 20191013

REACTIONS (3)
  - Ankylosing spondylitis [Unknown]
  - Lower respiratory tract infection [Unknown]
  - Sinusitis [Unknown]
